FAERS Safety Report 20339906 (Version 1)
Quarter: 2022Q1

REPORT INFORMATION
  Report Type: Spontaneous
  Country: US (occurrence: US)
  Receive Date: 20220117
  Receipt Date: 20220117
  Transmission Date: 20220423
  Serious: No
  Sender: FDA-Public Use
  Company Number: US-TOLMAR, INC.-21US032068

PATIENT
  Age: 25 Year
  Sex: Male

DRUGS (3)
  1. KETOCONAZOLE [Suspect]
     Active Substance: KETOCONAZOLE
     Indication: Alopecia
     Dosage: TWO TO THREE TIMES WEEKLY IN CONJUNCTION WITH OTHER MEDS IN KEEPS PACKAGE
     Route: 003
     Dates: start: 202111, end: 202112
  2. FINASTERIDE [Suspect]
     Active Substance: FINASTERIDE
     Indication: Alopecia
     Dosage: UNK
     Route: 048
     Dates: start: 202111, end: 202112
  3. MINOXIDIL [Suspect]
     Active Substance: MINOXIDIL
     Indication: Alopecia
     Dosage: UNK
     Route: 003
     Dates: start: 202111, end: 202112

REACTIONS (6)
  - Off label use [Unknown]
  - Ear swelling [Recovered/Resolved]
  - Eye swelling [Recovered/Resolved]
  - Pruritus [Recovered/Resolved]
  - Eye pruritus [Recovered/Resolved]
  - Hypersensitivity [Recovered/Resolved]

NARRATIVE: CASE EVENT DATE: 20211101
